FAERS Safety Report 7007894-4 (Version None)
Quarter: 2010Q3

REPORT INFORMATION
  Report Type: 
  Country: None (occurrence: None)
  Receive Date: 20100922
  Receipt Date: 20100906
  Transmission Date: 20110219
  Serious: Yes (Death, Hospitalization)
  Sender: FDA-Public Use
  Company Number: US-ROCHE-728278

PATIENT

DRUGS (5)
  1. CAPECITABINE [Suspect]
     Route: 065
  2. GEMCITABINE [Suspect]
     Route: 065
  3. GEMCITABINE [Suspect]
     Dosage: WHILST RECEIVING SECOND LINE; FOR 3 OUT OF 4 WEEKS
     Route: 065
  4. TAXOTERE [Suspect]
     Dosage: FOR 3 OUT OF 4 WEEKS
     Route: 065
  5. DEXAMETHASONE [Concomitant]
     Route: 048

REACTIONS (4)
  - DIARRHOEA [None]
  - MALIGNANT NEOPLASM PROGRESSION [None]
  - MUCOSAL INFLAMMATION [None]
  - PALMAR-PLANTAR ERYTHRODYSAESTHESIA SYNDROME [None]
